FAERS Safety Report 9051983 (Version 1)
Quarter: 2013Q1

REPORT INFORMATION
  Report Type: Spontaneous
  Country: US (occurrence: US)
  Receive Date: 20130207
  Receipt Date: 20130207
  Transmission Date: 20140127
  Serious: Yes (Other)
  Sender: FDA-Public Use
  Company Number: US-JNJFOC-20130114603

PATIENT
  Sex: Female
  Weight: 46.27 kg

DRUGS (2)
  1. RISPERDAL [Suspect]
     Indication: ATTENTION DEFICIT/HYPERACTIVITY DISORDER
     Route: 048
  2. FOLIC ACID [Concomitant]
     Indication: ATTENTION DEFICIT/HYPERACTIVITY DISORDER
     Route: 048

REACTIONS (7)
  - Suicidal ideation [Not Recovered/Not Resolved]
  - Breast enlargement [Recovered/Resolved]
  - Breast discharge [Recovered/Resolved]
  - Menstrual disorder [Not Recovered/Not Resolved]
  - Aggression [Not Recovered/Not Resolved]
  - Agitation [Not Recovered/Not Resolved]
  - Muscle spasms [Not Recovered/Not Resolved]
